FAERS Safety Report 13682796 (Version 1)
Quarter: 2017Q2

REPORT INFORMATION
  Report Type: Spontaneous
  Country: US (occurrence: US)
  Receive Date: 20170623
  Receipt Date: 20170623
  Transmission Date: 20170830
  Serious: No
  Sender: FDA-Public Use
  Company Number: US-MALLINCKRODT-T201606878

PATIENT
  Sex: Female

DRUGS (8)
  1. FLUCONAZOLE. [Concomitant]
     Active Substance: FLUCONAZOLE
     Dosage: 150 MG TAB
  2. SENSIPAR [Concomitant]
     Active Substance: CINACALCET HYDROCHLORIDE
     Dosage: 30 MG TAB
  3. ZETIA [Concomitant]
     Active Substance: EZETIMIBE
     Dosage: 10 MG TAB
  4. H.P. ACTHAR [Suspect]
     Active Substance: CORTICOTROPIN
     Indication: NEPHROTIC SYNDROME
     Dosage: UNKNOWN
     Route: 065
  5. LEVOCARNITIN [Concomitant]
     Dosage: 330 MG TAB
  6. PREDNISONE. [Concomitant]
     Active Substance: PREDNISONE
     Dosage: 1 MG TAB
  7. CLINDAMYCIN. [Concomitant]
     Active Substance: CLINDAMYCIN
  8. GLYBURIDE. [Concomitant]
     Active Substance: GLYBURIDE
     Dosage: 1.25 MG TAB

REACTIONS (1)
  - Hypersensitivity [Unknown]
